FAERS Safety Report 9193660 (Version 2)
Quarter: 2013Q2

REPORT INFORMATION
  Report Type: Spontaneous
  Country: US (occurrence: None)
  Receive Date: 20120703
  Receipt Date: 20121031
  Transmission Date: 20140414
  Serious: Yes (Other)
  Sender: FDA-Public Use
  Company Number: PHEH2012US006184

PATIENT
  Age: 31 Year
  Sex: Female

DRUGS (11)
  1. GILENYA [Suspect]
     Indication: MULTIPLE SCLEROSIS
     Dosage: 0.5 MG, UNK, ORAL
     Route: 048
     Dates: start: 20120313
  2. PLAQUENIL (HYDROXYCHLOROQUINE SULFATE) / ORAL / TABLET, FILM COATED / 200 MILLIGRAM(S) [Concomitant]
  3. VICODIN (HYDROCODONE BITARTRATE, PARACETAMOL) [Concomitant]
  4. VITAMIN D (ERGOCALCIFEROL) [Concomitant]
  5. VITAMIN B (VITAMIN B NOS) [Concomitant]
  6. CARDURA (DOXAZOSIN MESILATE) [Concomitant]
  7. TOVIAZ (FESOTERODINE FUMARATE) [Concomitant]
  8. TRILEPTAL (OXCARBAZEPINE) [Concomitant]
  9. BACLOFEN (BACLOFEN) [Concomitant]
  10. PAXIL (PAROXETINE HYDROCHLORIDE) [Concomitant]
  11. ZANAFLEX (TIZANIDINE HYDROCHLORIDE) [Concomitant]

REACTIONS (2)
  - Abdominal pain [None]
  - Herpes zoster [None]
